FAERS Safety Report 7493727-9 (Version None)
Quarter: 2011Q2

REPORT INFORMATION
  Report Type: 
  Country: None (occurrence: None)
  Receive Date: 20110520
  Receipt Date: 20110517
  Transmission Date: 20111010
  Serious: Yes (Death, Hospitalization, Other)
  Sender: FDA-Public Use
  Company Number: JP-BAYER-201015559BYL

PATIENT
  Age: 66 Year
  Sex: Male
  Weight: 62.7 kg

DRUGS (2)
  1. NEXAVAR [Suspect]
     Indication: RENAL CELL CARCINOMA
     Dosage: 800 MG (DAILY DOSE), , ORAL
     Route: 048
     Dates: start: 20090828, end: 20100819
  2. LANSOPRAZOLE [Concomitant]
     Indication: PROPHYLAXIS
     Dosage: 15 MG (DAILY DOSE), , ORAL
     Route: 048
     Dates: start: 20090829, end: 20100814

REACTIONS (8)
  - MYOCARDIAL INFARCTION [None]
  - PALMAR-PLANTAR ERYTHRODYSAESTHESIA SYNDROME [None]
  - ANAEMIA [None]
  - SINUSITIS [None]
  - EPIDIDYMITIS [None]
  - SEPSIS [None]
  - SUBCUTANEOUS ABSCESS [None]
  - RENAL IMPAIRMENT [None]
